FAERS Safety Report 23144819 (Version 1)
Quarter: 2023Q4

REPORT INFORMATION
  Report Type: Spontaneous
  Country: US (occurrence: None)
  Receive Date: 20231103
  Receipt Date: 20231103
  Transmission Date: 20240109
  Serious: Yes (Other)
  Sender: FDA-Public Use
  Company Number: None

PATIENT
  Age: 60 Year
  Sex: Female

DRUGS (1)
  1. GRANISETRON [Suspect]
     Active Substance: GRANISETRON
     Dosage: OTHER FREQUENCY : ON DAY 1 OF A;?

REACTIONS (4)
  - Speech disorder [None]
  - Gait disturbance [None]
  - Infusion related reaction [None]
  - Dizziness [None]
